FAERS Safety Report 6162758-3 (Version None)
Quarter: 2009Q2

REPORT INFORMATION
  Report Type: 
  Country: None (occurrence: None)
  Receive Date: 20090421
  Receipt Date: 20080509
  Transmission Date: 20091009
  Serious: No
  Sender: FDA-Public Use
  Company Number: US-ASTRAZENECA-2008UW09660

PATIENT
  Sex: Female

DRUGS (2)
  1. TOPROL-XL [Suspect]
  2. COUMADIN [Concomitant]

REACTIONS (3)
  - DRY EYE [None]
  - DRY MOUTH [None]
  - DRY SKIN [None]
